FAERS Safety Report 25305513 (Version 4)
Quarter: 2025Q4

REPORT INFORMATION
  Report Type: Report from Study
  Country: US (occurrence: US)
  Receive Date: 20250513
  Receipt Date: 20251019
  Transmission Date: 20260117
  Serious: No
  Sender: TRAVERE THERAPEUTICS
  Company Number: US-TRAVERE-2025TVT00585

PATIENT
  Age: 59 Year
  Sex: Male

DRUGS (13)
  1. FILSPARI [Suspect]
     Active Substance: SPARSENTAN
     Indication: IgA nephropathy
     Route: 048
     Dates: start: 20250423
  2. FILSPARI [Suspect]
     Active Substance: SPARSENTAN
     Route: 048
     Dates: start: 20250506
  3. FILSPARI [Suspect]
     Active Substance: SPARSENTAN
     Route: 048
     Dates: start: 20250422
  4. METOPROLOL [Concomitant]
     Active Substance: METOPROLOL
  5. FLOMAX [Concomitant]
     Active Substance: TAMSULOSIN HYDROCHLORIDE
  6. ELIQUIS [Concomitant]
     Active Substance: APIXABAN
  7. TACROLIMUS [Concomitant]
     Active Substance: TACROLIMUS
  8. PREDNISONE [Concomitant]
     Active Substance: PREDNISONE
  9. FLECAINIDE [Concomitant]
     Active Substance: FLECAINIDE
  10. LEVOTHYROXINE [Concomitant]
     Active Substance: LEVOTHYROXINE
  11. ALLOPURINOL [Concomitant]
     Active Substance: ALLOPURINOL
  12. METFORMIN [Concomitant]
     Active Substance: METFORMIN HYDROCHLORIDE
  13. TAMSULOSIN [Concomitant]
     Active Substance: TAMSULOSIN

REACTIONS (7)
  - Hypotension [None]
  - Feeling abnormal [Unknown]
  - Lymphocyte count decreased [Unknown]
  - Alanine aminotransferase decreased [Unknown]
  - Red blood cell count decreased [Unknown]
  - Pollakiuria [Unknown]
  - Dizziness [Unknown]

NARRATIVE: CASE EVENT DATE: 20250423
